FAERS Safety Report 4448315-5 (Version None)
Quarter: 2004Q3

REPORT INFORMATION
  Report Type: 
  Country: None (occurrence: None)
  Receive Date: 20040913
  Receipt Date: 20040830
  Transmission Date: 20050211
  Serious: Yes (Hospitalization)
  Sender: FDA-Public Use
  Company Number: 2004CG01078

PATIENT
  Age: 73 Year
  Sex: Female
  Weight: 60 kg

DRUGS (13)
  1. MOPRAL [Suspect]
     Dosage: NI
     Dates: end: 20040502
  2. MEPRONIZINE [Suspect]
     Dosage: 2 DF DAILY;PO
     Route: 048
     Dates: end: 20040502
  3. ZOCOR [Suspect]
     Dosage: NI
     Dates: end: 20040502
  4. SERETIDE ^GALXO WELLCOME^ [Suspect]
     Dosage: NI
     Dates: end: 20040502
  5. FOSAMAX [Suspect]
     Dosage: 70 MG WEEK; PO
     Route: 048
     Dates: end: 20040502
  6. COZAAR [Suspect]
     Dosage: 50 MG DAILY; PO
     Route: 048
     Dates: end: 20040502
  7. RENNIE   /00219301/ [Suspect]
     Dosage: NI
     Dates: end: 20040502
  8. SERC [Suspect]
     Dosage: NI
     Dates: end: 20040502
  9. OROCAL D(3) [Suspect]
     Dosage: NI
     Dates: end: 20040502
  10. BRONCHODUAL [Suspect]
     Dosage: NI
     Dates: end: 20040502
  11. LEXOMIL [Suspect]
     Dosage: NI
     Dates: end: 20040502
  12. ZOLPIDEM TARTRATE [Suspect]
     Dosage: NI
     Dates: end: 20040502
  13. CODOLIPRANE [Suspect]
     Dosage: NI
     Dates: end: 20040502

REACTIONS (12)
  - COMA [None]
  - CONFUSIONAL STATE [None]
  - DIARRHOEA [None]
  - HYPONATRAEMIA [None]
  - LEUKOCYTOSIS [None]
  - METABOLIC ACIDOSIS [None]
  - NEUTROPHIL COUNT INCREASED [None]
  - RENAL FAILURE [None]
  - RESPIRATORY DISTRESS [None]
  - RHABDOMYOLYSIS [None]
  - SEPSIS [None]
  - SEPTIC SHOCK [None]
